FAERS Safety Report 9500923 (Version 1)
Quarter: 2013Q1

REPORT INFORMATION
  Report Type: Spontaneous
  Country: US (occurrence: None)
  Receive Date: 20130116
  Receipt Date: 20130116
  Transmission Date: 20140127
  Serious: Yes (Other)
  Sender: FDA-Public Use
  Company Number: CTI_01442_2012

PATIENT
  Sex: Male

DRUGS (1)
  1. CUROSURF [Suspect]
     Indication: ACUTE RESPIRATORY DISTRESS SYNDROME
     Dosage: 2.5 ML/KG SINGLE DOSE

REACTIONS (1)
  - Pneumothorax [None]
